FAERS Safety Report 5026211-2 (Version None)
Quarter: 2006Q2

REPORT INFORMATION
  Report Type: 
  Country: None (occurrence: None)
  Receive Date: 20060608
  Receipt Date: 20060526
  Transmission Date: 20061013
  Serious: Yes (Other)
  Sender: FDA-Public Use
  Company Number: 2006034817

PATIENT
  Age: 44 Year
  Sex: Female
  Weight: 180 kg

DRUGS (4)
  1. LYRICA [Suspect]
     Indication: NEURALGIA
     Dosage: 150 MG (75 MG, 1 IN 12 HR), ORAL
     Route: 048
     Dates: start: 20060101, end: 20060101
  2. TRAMADOL HYDROCHLORIDE [Suspect]
     Indication: NEURALGIA
     Dosage: UNKNOWN (50 MG, 1 IN 12 HR), UNKNOWN
     Route: 065
     Dates: start: 20060101, end: 20060101
  3. ACECLOFENAC (ACECLOFENAC) [Concomitant]
  4. OMEPRAZOLE [Concomitant]

REACTIONS (6)
  - ANXIETY [None]
  - ASTHENIA [None]
  - BONE PAIN [None]
  - HYPOAESTHESIA [None]
  - NAUSEA [None]
  - PARALYSIS [None]
